FAERS Safety Report 8140385-6 (Version None)
Quarter: 2012Q1

REPORT INFORMATION
  Report Type: 
  Country: None (occurrence: None)
  Receive Date: 20120216
  Receipt Date: 20120209
  Transmission Date: 20120608
  Serious: No
  Sender: FDA-Public Use
  Company Number: US-PFIZER INC-2012038329

PATIENT
  Sex: Female

DRUGS (4)
  1. NORGESTREL AND ETHINYL ESTRADIOL [Suspect]
     Indication: MENSTRUAL DISCOMFORT
  2. NORGESTREL AND ETHINYL ESTRADIOL [Suspect]
     Indication: OFF LABEL USE
  3. METFORMIN [Concomitant]
  4. SPIRONOLACTONE [Concomitant]

REACTIONS (2)
  - MENSTRUATION DELAYED [None]
  - MENSTRUATION IRREGULAR [None]
